FAERS Safety Report 6610618-3 (Version None)
Quarter: 2010Q1

REPORT INFORMATION
  Report Type: 
  Country: None (occurrence: None)
  Receive Date: 20100302
  Receipt Date: 20100219
  Transmission Date: 20100710
  Serious: Yes (Hospitalization)
  Sender: FDA-Public Use
  Company Number: US-TYCO HEALTHCARE/MALLINCKRODT-T201000666

PATIENT
  Sex: Female
  Weight: 47.619 kg

DRUGS (3)
  1. OXYCODONE HCL AND ACETAMINOPHEN [Suspect]
     Indication: FACIAL PAIN
     Dosage: 1-2 TABLETS Q4HRS PRN
     Route: 048
     Dates: start: 20100203, end: 20100203
  2. LISINOPRIL [Concomitant]
     Dosage: 20 MG, QD
     Route: 048
  3. SIMVASTATIN [Concomitant]
     Dosage: 40 MG, QD
     Route: 048

REACTIONS (2)
  - DYSPNOEA [None]
  - SYNCOPE [None]
